FAERS Safety Report 4747319-2 (Version None)
Quarter: 2005Q3

REPORT INFORMATION
  Report Type: 
  Country: None (occurrence: None)
  Receive Date: 20050815
  Receipt Date: 20050513
  Transmission Date: 20060218
  Serious: No
  Sender: FDA-Public Use
  Company Number: USA050598049

PATIENT
  Age: 66 Year
  Sex: Male

DRUGS (6)
  1. CIALIS [Suspect]
     Dosage: 20 MG
     Dates: start: 20040901
  2. GLUCOVANCE [Concomitant]
  3. CARDIZEM [Concomitant]
  4. HCT (HYDROCHLOROTHIAZIDE) [Concomitant]
  5. ATENOLOL [Concomitant]
  6. ENALAPRIL [Concomitant]

REACTIONS (2)
  - DRUG INEFFECTIVE [None]
  - THERAPEUTIC RESPONSE DECREASED [None]
